FAERS Safety Report 6877012-1 (Version None)
Quarter: 2010Q3

REPORT INFORMATION
  Report Type: 
  Country: None (occurrence: None)
  Receive Date: 20100727
  Receipt Date: 20100722
  Transmission Date: 20110219
  Serious: Yes (Death)
  Sender: FDA-Public Use
  Company Number: IN-AMGEN-UK305006

PATIENT
  Sex: Male
  Weight: 68 kg

DRUGS (17)
  1. DENOSUMAB [Suspect]
     Indication: METASTASES TO BONE
     Route: 058
     Dates: start: 20070926, end: 20080731
  2. ZOMETA [Suspect]
     Indication: METASTASES TO BONE
     Route: 042
     Dates: start: 20070926, end: 20080731
  3. MITOXANTRONE [Concomitant]
     Route: 048
     Dates: end: 20080121
  4. PREDNISOLONE [Concomitant]
     Route: 048
     Dates: end: 20080418
  5. PANTOPRAZOLE [Concomitant]
     Route: 048
     Dates: end: 20080121
  6. RANITIDINE [Concomitant]
     Route: 048
     Dates: start: 20080319
  7. ETORICOXIB [Concomitant]
     Route: 048
     Dates: start: 20080319, end: 20080402
  8. AUGMENTIN '125' [Concomitant]
     Route: 048
     Dates: start: 20080416, end: 20080426
  9. OMEPRAZOLE [Concomitant]
     Route: 048
     Dates: start: 20080415, end: 20080805
  10. URSODIOL [Concomitant]
     Route: 048
     Dates: start: 20080415, end: 20080805
  11. LASILACTONE [Concomitant]
     Route: 048
     Dates: start: 20080415, end: 20080805
  12. CALCIUM CARBONATE [Concomitant]
     Route: 048
     Dates: start: 20070926
  13. VITAMIN C AND E [Concomitant]
     Route: 048
     Dates: start: 20070926
  14. LACTULOSE [Concomitant]
     Route: 048
     Dates: start: 20080415, end: 20080805
  15. NEUROBION [Concomitant]
     Route: 048
     Dates: start: 20080415, end: 20080805
  16. PROPRANOLOL [Concomitant]
     Route: 048
     Dates: start: 20080415, end: 20080805
  17. DICLOFENAC [Concomitant]
     Route: 061
     Dates: start: 20080415, end: 20080805

REACTIONS (1)
  - DEATH [None]
